FAERS Safety Report 12904865 (Version 1)
Quarter: 2016Q4

REPORT INFORMATION
  Report Type: Spontaneous
  Country: US (occurrence: US)
  Receive Date: 20161102
  Receipt Date: 20161102
  Transmission Date: 20170207
  Serious: Yes (Other)
  Sender: FDA-Public Use
  Company Number: US-SHIRE-US201615632

PATIENT
  Age: 69 Year
  Sex: Female

DRUGS (6)
  1. HYDROCORTISONE. [Concomitant]
     Active Substance: HYDROCORTISONE
     Indication: BLEPHARITIS
     Dosage: UNK UNK, UNKNOWN
     Route: 061
     Dates: end: 2016
  2. XIIDRA [Suspect]
     Active Substance: LIFITEGRAST
     Indication: PRODUCT USED FOR UNKNOWN INDICATION
     Dosage: 1 GTT IN EACH EYE, 2X/DAY:BID
     Route: 047
  3. RESTASIS [Concomitant]
     Active Substance: CYCLOSPORINE
     Indication: PRODUCT USED FOR UNKNOWN INDICATION
     Dosage: 1 GTT IN EACH EYE, 2X/DAY:BID
     Route: 047
     Dates: end: 2016
  4. OMEGA 3                            /01334101/ [Concomitant]
     Active Substance: OMEGA-3 FATTY ACIDS
     Indication: PRODUCT USED FOR UNKNOWN INDICATION
     Dosage: UNK, 2X/DAY:BID
     Route: 065
     Dates: end: 2016
  5. PLAQUENIL                          /00072602/ [Concomitant]
     Active Substance: HYDROXYCHLOROQUINE DIPHOSPHATE
     Indication: PRODUCT USED FOR UNKNOWN INDICATION
     Dosage: 200 MG, 1X/DAY:QD
     Route: 048
     Dates: end: 2016
  6. LOTEMAX [Concomitant]
     Active Substance: LOTEPREDNOL ETABONATE
     Indication: PRODUCT USED FOR UNKNOWN INDICATION
     Dosage: 1 GTT IN EACH EYE, 2X/DAY:BID
     Route: 047
     Dates: end: 2016

REACTIONS (4)
  - Corneal thinning [Recovering/Resolving]
  - Ulcerative keratitis [Recovering/Resolving]
  - Eye disorder [Recovering/Resolving]
  - Graft complication [Recovering/Resolving]

NARRATIVE: CASE EVENT DATE: 201609
